FAERS Safety Report 4698738-4 (Version None)
Quarter: 2005Q2

REPORT INFORMATION
  Report Type: 
  Country: None (occurrence: None)
  Receive Date: 20050621
  Receipt Date: 20050311
  Transmission Date: 20051028
  Serious: Yes (Other)
  Sender: FDA-Public Use
  Company Number: 2005024939

PATIENT
  Age: 48 Year
  Sex: Male
  Weight: 90 kg

DRUGS (9)
  1. VFEND [Suspect]
     Indication: FUNGAEMIA
     Dosage: SEE IMAGE
     Route: 042
     Dates: start: 20041102, end: 20041102
  2. VFEND [Suspect]
     Indication: FUNGAEMIA
     Dosage: SEE IMAGE
     Route: 042
     Dates: start: 20041103, end: 20041109
  3. CEFEPIME (CEFEPIME) [Concomitant]
  4. CELECOXIB (CELECOXIB) [Concomitant]
  5. ENOXAPARIN SODIUM [Concomitant]
  6. FUROSEMIDE [Concomitant]
  7. GABAPENTIN [Concomitant]
  8. MEROPENEM (MEROPENEM) [Concomitant]
  9. CASPOFUNGIN (CASPOFUNGIN) [Concomitant]

REACTIONS (1)
  - NIGHTMARE [None]
